FAERS Safety Report 4610821-8 (Version None)
Quarter: 2005Q2

REPORT INFORMATION
  Report Type: 
  Country: None (occurrence: None)
  Receive Date: 20050225
  Receipt Date: 20041122
  Transmission Date: 20051028
  Serious: Yes (Other)
  Sender: FDA-Public Use
  Company Number: C2004-200-492

PATIENT
  Sex: Female
  Weight: 58.9676 kg

DRUGS (7)
  1. CEFAZOLIN [Suspect]
     Indication: ANTIBACTERIAL PROPHYLAXIS
     Dosage: 1G/20ML ONCE IV
     Route: 042
     Dates: start: 20041009
  2. MIDAZOLAM HCL [Concomitant]
  3. SUFENTANIL CITRATE [Concomitant]
  4. PROPOFOL [Concomitant]
  5. RUBINOL [Concomitant]
  6. CIMITIDINE [Concomitant]
  7. .. [Concomitant]

REACTIONS (1)
  - ANAPHYLACTIC SHOCK [None]
